FAERS Safety Report 9863547 (Version 1)
Quarter: 2014Q1

REPORT INFORMATION
  Report Type: Spontaneous
  Country: US (occurrence: US)
  Receive Date: 20140203
  Receipt Date: 20140203
  Transmission Date: 20141002
  Serious: Yes (Death, Hospitalization)
  Sender: FDA-Public Use
  Company Number: US-B.I. PHARMACEUTICALS,INC./RIDGEFIELD-2014-BI-04665BP

PATIENT
  Sex: Female

DRUGS (1)
  1. PRADAXA [Suspect]
     Indication: ATRIAL FIBRILLATION
     Dates: start: 201103

REACTIONS (3)
  - Death [Fatal]
  - Haemorrhagic anaemia [Unknown]
  - Haematuria [Unknown]
